FAERS Safety Report 15900705 (Version 2)
Quarter: 2019Q1

REPORT INFORMATION
  Report Type: Report from Study
  Country: US (occurrence: US)
  Receive Date: 20190201
  Receipt Date: 20190208
  Transmission Date: 20190417
  Serious: Yes (Life-Threatening, Hospitalization, Other)
  Sender: FDA-Public Use
  Company Number: US-ASTRAZENECA-2018SF70006

PATIENT
  Age: 951 Month
  Sex: Female
  Weight: 90.7 kg

DRUGS (3)
  1. TOUJEO SOLAR STAR [Concomitant]
     Indication: TYPE 2 DIABETES MELLITUS
     Dosage: 300 UNITS/ML PEN 1.5 ML ROUTE IN THE STOMACH
     Dates: start: 2016
  2. BYDUREON BCISE [Suspect]
     Active Substance: EXENATIDE
     Indication: TYPE 2 DIABETES MELLITUS
     Route: 058
     Dates: start: 20181206
  3. BYDUREON [Suspect]
     Active Substance: EXENATIDE
     Indication: TYPE 2 DIABETES MELLITUS
     Route: 058

REACTIONS (20)
  - Injection site haemorrhage [Recovered/Resolved]
  - Pain of skin [Unknown]
  - Impaired gastric emptying [Not Recovered/Not Resolved]
  - Heart rate irregular [Recovered/Resolved]
  - Weight decreased [Not Recovered/Not Resolved]
  - Cardiac disorder [Recovered/Resolved]
  - Gastroenteritis salmonella [Recovered/Resolved]
  - Abdominal pain upper [Unknown]
  - Vomiting [Recovered/Resolved]
  - Cerebrovascular accident [Unknown]
  - Injection site bruising [Not Recovered/Not Resolved]
  - Injection site pain [Recovered/Resolved]
  - Device issue [Unknown]
  - Contusion [Not Recovered/Not Resolved]
  - Dysuria [Not Recovered/Not Resolved]
  - Asthenia [Not Recovered/Not Resolved]
  - Device leakage [Unknown]
  - Lung infection [Unknown]
  - Limb discomfort [Not Recovered/Not Resolved]
  - Headache [Recovered/Resolved]

NARRATIVE: CASE EVENT DATE: 201712
